FAERS Safety Report 5999293-9 (Version None)
Quarter: 2008Q4

REPORT INFORMATION
  Report Type: 
  Country: None (occurrence: None)
  Receive Date: 20081215
  Receipt Date: 20081210
  Transmission Date: 20090506
  Serious: Yes (Hospitalization)
  Sender: FDA-Public Use
  Company Number: FR-BRISTOL-MYERS SQUIBB COMPANY-14441240

PATIENT
  Age: 7 Year
  Sex: Female

DRUGS (2)
  1. AMIKLIN [Suspect]
     Indication: CHOLANGITIS
     Route: 048
     Dates: start: 20080907, end: 20080908
  2. TAZOCILLINE [Suspect]
     Indication: CHOLANGITIS
     Route: 048
     Dates: start: 20080907, end: 20080908

REACTIONS (3)
  - CHOLANGITIS [None]
  - PRURITUS [None]
  - URTICARIA [None]
